FAERS Safety Report 19083186 (Version 1)
Quarter: 2021Q1

REPORT INFORMATION
  Report Type: Spontaneous
  Country: US (occurrence: US)
  Receive Date: 20210331
  Receipt Date: 20210331
  Transmission Date: 20210420
  Serious: Yes (Hospitalization)
  Sender: FDA-Public Use
  Company Number: None

PATIENT
  Age: 78 Year
  Sex: Male

DRUGS (3)
  1. VANCOMYCIN (VANCOMYCIN HCL 1GM/VIL INJ) [Suspect]
     Active Substance: VANCOMYCIN HYDROCHLORIDE
     Indication: BACTERAEMIA
     Route: 042
     Dates: start: 20201125, end: 20201209
  2. VANCOMYCIN (VANCOMYCIN HCL 1GM/VIL INJ) [Suspect]
     Active Substance: VANCOMYCIN HYDROCHLORIDE
     Indication: STAPHYLOCOCCAL INFECTION
     Route: 042
     Dates: start: 20201125, end: 20201209
  3. SIMVASTATIN (SIMVASTATIN 40MG TAB) [Suspect]
     Active Substance: SIMVASTATIN
     Route: 048
     Dates: start: 20060608, end: 20201219

REACTIONS (9)
  - Hepatic cirrhosis [None]
  - Blood alkaline phosphatase increased [None]
  - Chest pain [None]
  - Cough [None]
  - Headache [None]
  - Hepatic enzyme increased [None]
  - Drug-induced liver injury [None]
  - Dizziness [None]
  - Chills [None]

NARRATIVE: CASE EVENT DATE: 20201218
